FAERS Safety Report 4412008-0 (Version None)
Quarter: 2004Q3

REPORT INFORMATION
  Report Type: 
  Country: None (occurrence: None)
  Receive Date: 20040728
  Receipt Date: 20040712
  Transmission Date: 20050211
  Serious: Yes (Death)
  Sender: FDA-Public Use
  Company Number: 2004US000781

PATIENT
  Age: 69 Year
  Sex: Male

DRUGS (2)
  1. PROGRAF [Suspect]
     Indication: HEART TRANSPLANT
  2. RAPAMUNE [Suspect]

REACTIONS (1)
  - MULTI-ORGAN FAILURE [None]
